FAERS Safety Report 9876924 (Version 1)
Quarter: 2014Q1

REPORT INFORMATION
  Report Type: Spontaneous
  Country: CA (occurrence: None)
  Receive Date: 20140204
  Receipt Date: 20140204
  Transmission Date: 20141002
  Serious: Yes (Life-Threatening)
  Sender: FDA-Public Use
  Company Number: AUR-APL-2014-01035

PATIENT
  Age: 84 Year
  Sex: Female

DRUGS (2)
  1. LOSARTAN (LOSARTAN) [Suspect]
     Indication: PRODUCT USED FOR UNKNOWN INDICATION
     Route: 048
  2. OLMETEC (OLMESARTAN MEDOXOMIL) [Suspect]
     Indication: PRODUCT USED FOR UNKNOWN INDICATION
     Route: 048

REACTIONS (11)
  - Drug hypersensitivity [None]
  - Abdominal discomfort [None]
  - Constipation [None]
  - Dizziness [None]
  - Dyspepsia [None]
  - Flatulence [None]
  - Headache [None]
  - Nausea [None]
  - Product substitution issue [None]
  - Speech disorder [None]
  - Swollen tongue [None]
